FAERS Safety Report 5728497-5 (Version None)
Quarter: 2008Q2

REPORT INFORMATION
  Report Type: 
  Country: None (occurrence: None)
  Receive Date: 20080506
  Receipt Date: 20080424
  Transmission Date: 20081010
  Serious: Yes (Hospitalization)
  Sender: FDA-Public Use
  Company Number: JP-BRISTOL-MYERS SQUIBB COMPANY-14173942

PATIENT
  Age: 50 Year
  Sex: Male

DRUGS (3)
  1. IFOMIDE [Suspect]
     Indication: LYMPHOMA
     Route: 041
     Dates: start: 20080418
  2. CARBOPLATIN [Concomitant]
     Indication: LYMPHOMA
     Dates: start: 20080418
  3. ETOPOSIDE [Concomitant]
     Indication: LYMPHOMA
     Dates: start: 20080418

REACTIONS (2)
  - ENCEPHALOPATHY [None]
  - RENAL IMPAIRMENT [None]
